FAERS Safety Report 7577055-9 (Version None)
Quarter: 2011Q2

REPORT INFORMATION
  Report Type: 
  Country: None (occurrence: None)
  Receive Date: 20110628
  Receipt Date: 20110127
  Transmission Date: 20111010
  Serious: Yes (Hospitalization, Other)
  Sender: FDA-Public Use
  Company Number: US-BAYER-201037418NA

PATIENT
  Age: 18 Year
  Sex: Female
  Weight: 46.712 kg

DRUGS (4)
  1. YAZ [Suspect]
     Indication: PRODUCT USED FOR UNKNOWN INDICATION
     Route: 048
     Dates: start: 20071002
  2. METOLOPRAM [Concomitant]
     Dosage: 10 MG, UNK
  3. PRENATAL PLUS TAB [Concomitant]
     Indication: PRODUCT USED FOR UNKNOWN INDICATION
     Dosage: UNK
     Dates: start: 20071002, end: 20080310
  4. HYEROCO/APA [Concomitant]

REACTIONS (7)
  - CHOLELITHIASIS [None]
  - FAT INTOLERANCE [None]
  - EMOTIONAL DISTRESS [None]
  - SCAR [None]
  - CHOLECYSTITIS [None]
  - NAUSEA [None]
  - ABDOMINAL PAIN [None]
